FAERS Safety Report 4697883-7 (Version None)
Quarter: 2005Q2

REPORT INFORMATION
  Report Type: 
  Country: None (occurrence: None)
  Receive Date: 20050623
  Receipt Date: 20050615
  Transmission Date: 20051028
  Serious: Yes (Other)
  Sender: FDA-Public Use
  Company Number: US-ABBOTT-05P-163-0303650-00

PATIENT
  Age: 6 Year
  Sex: Male

DRUGS (1)
  1. OMNICEF [Suspect]
     Indication: SINUSITIS
     Route: 048
     Dates: start: 20050426, end: 20050504

REACTIONS (2)
  - ERYTHEMA MULTIFORME [None]
  - SERUM SICKNESS [None]
